FAERS Safety Report 7293484-5 (Version None)
Quarter: 2011Q1

REPORT INFORMATION
  Report Type: 
  Country: None (occurrence: None)
  Receive Date: 20110215
  Receipt Date: 20110201
  Transmission Date: 20110831
  Serious: Yes (Death)
  Sender: FDA-Public Use
  Company Number: US-CELGENEUS-163-21880-11021083

PATIENT
  Sex: Male

DRUGS (4)
  1. REVLIMID [Suspect]
     Indication: MULTIPLE MYELOMA
     Route: 048
     Dates: start: 20090721, end: 20090805
  2. REVLIMID [Suspect]
     Route: 048
     Dates: start: 20090901
  3. REVLIMID [Suspect]
     Route: 048
     Dates: start: 20100301, end: 20100101
  4. REVLIMID [Suspect]
     Route: 048
     Dates: start: 20101122

REACTIONS (1)
  - DEATH [None]
